FAERS Safety Report 18468903 (Version 3)
Quarter: 2021Q1

REPORT INFORMATION
  Report Type: Spontaneous
  Country: DE (occurrence: DE)
  Receive Date: 20201105
  Receipt Date: 20210201
  Transmission Date: 20210419
  Serious: Yes (Hospitalization, Disabling, Other)
  Sender: FDA-Public Use
  Company Number: DE-B.I. PHARMACEUTICALS,INC./RIDGEFIELD-2020-BI-058308

PATIENT
  Age: 78 Year
  Sex: Male
  Weight: 72 kg

DRUGS (14)
  1. VARGATEF [Suspect]
     Active Substance: NINTEDANIB
     Dosage: 1?0?1
  2. VARGATEF [Suspect]
     Active Substance: NINTEDANIB
     Dates: start: 20190919
  3. MUTAFLOR [Concomitant]
     Active Substance: ESCHERICHIA COLI
     Indication: GASTROINTESTINAL DISORDER
     Dosage: DAILY DOSE = 20
     Dates: start: 202005
  4. PREDNISOLON [PREDNISOLONE] [Concomitant]
     Active Substance: PREDNISOLONE
     Dosage: MASSIVEDOSE PULSE THERAPY
     Dates: start: 20201102
  5. TAMSULOSIN [Concomitant]
     Active Substance: TAMSULOSIN
     Indication: PRODUCT USED FOR UNKNOWN INDICATION
     Dosage: 1?0?0
  6. OXYGEN. [Concomitant]
     Active Substance: OXYGEN
     Indication: PRODUCT USED FOR UNKNOWN INDICATION
     Dosage: 2 LITER PER MINUTE ? OXYGEN LONG TERM THERAPY
  7. TAZOBACTAM [Concomitant]
     Active Substance: TAZOBACTAM
     Indication: IDIOPATHIC PULMONARY FIBROSIS
  8. PANTOZOLE [Concomitant]
     Active Substance: PANTOPRAZOLE SODIUM
     Indication: PRODUCT USED FOR UNKNOWN INDICATION
     Dosage: 1?0?0
  9. OXYGEN. [Concomitant]
     Active Substance: OXYGEN
     Dosage: LONG?TERM OXYGEN THERAPY (MOBILE AND STATIONARY) WITH 1?2 L/MIN
  10. PREDNISOLON [PREDNISOLONE] [Concomitant]
     Active Substance: PREDNISOLONE
     Indication: PRODUCT USED FOR UNKNOWN INDICATION
     Dosage: 1?0?0 (DAILY REDUCTION BY 5 MG , THAN WITHDRAWAL)
  11. TAZOBACTAM [Concomitant]
     Active Substance: TAZOBACTAM
     Indication: CYSTITIS
  12. VARGATEF [Suspect]
     Active Substance: NINTEDANIB
     Indication: IDIOPATHIC PULMONARY FIBROSIS
     Dosage: 1 CAPSULE/DAY
     Dates: start: 20180907
  13. METOPROLOL. [Concomitant]
     Active Substance: METOPROLOL
     Indication: PRODUCT USED FOR UNKNOWN INDICATION
     Dosage: 1?0?1
  14. SITAGLIPTIN [Concomitant]
     Active Substance: SITAGLIPTIN
     Indication: PRODUCT USED FOR UNKNOWN INDICATION
     Dosage: 1?0?0

REACTIONS (13)
  - Off label use [Not Recovered/Not Resolved]
  - Diarrhoea [Recovering/Resolving]
  - Depression [Unknown]
  - General physical health deterioration [Unknown]
  - Micturition urgency [Recovering/Resolving]
  - Cystitis [Recovering/Resolving]
  - Asthenia [Not Recovered/Not Resolved]
  - Seizure [Recovering/Resolving]
  - Weight decreased [Not Recovered/Not Resolved]
  - Idiopathic pulmonary fibrosis [Unknown]
  - Proteus test positive [Recovering/Resolving]
  - Bedridden [Not Recovered/Not Resolved]
  - Abdominal discomfort [Not Recovered/Not Resolved]

NARRATIVE: CASE EVENT DATE: 20190919
